FAERS Safety Report 19980994 (Version 3)
Quarter: 2022Q2

REPORT INFORMATION
  Report Type: Spontaneous
  Country: US (occurrence: US)
  Receive Date: 20211021
  Receipt Date: 20220408
  Transmission Date: 20220721
  Serious: Yes (Other)
  Sender: FDA-Public Use
  Company Number: US-PFIZER INC-202101352322

PATIENT
  Age: 45 Year
  Sex: Female
  Weight: 48.08 kg

DRUGS (3)
  1. LIDOCAINE HYDROCHLORIDE [Suspect]
     Active Substance: LIDOCAINE HYDROCHLORIDE
     Indication: Cystitis interstitial
     Dosage: 30 ML, 1X/DAY
     Dates: start: 20211006, end: 20211006
  2. LIDOCAINE HYDROCHLORIDE [Suspect]
     Active Substance: LIDOCAINE HYDROCHLORIDE
     Indication: Therapeutic procedure
  3. SODIUM BICARBONATE [Concomitant]
     Active Substance: SODIUM BICARBONATE
     Dosage: UNK, (10 CC)
     Dates: start: 20211006, end: 20211006

REACTIONS (4)
  - Syncope [Recovered/Resolved]
  - Paraesthesia oral [Recovered/Resolved]
  - Feeling abnormal [Recovered/Resolved]
  - Toxicity to various agents [Unknown]

NARRATIVE: CASE EVENT DATE: 20211006
